FAERS Safety Report 19062886 (Version 1)
Quarter: 2021Q1

REPORT INFORMATION
  Report Type: Spontaneous
  Country: US (occurrence: US)
  Receive Date: 20210326
  Receipt Date: 20210326
  Transmission Date: 20210420
  Serious: Yes (Other)
  Sender: FDA-Public Use
  Company Number: None

PATIENT
  Age: 24 Year
  Sex: Male
  Weight: 67.5 kg

DRUGS (2)
  1. AVASTIN [Concomitant]
     Active Substance: BEVACIZUMAB
  2. MEKTOVI [Suspect]
     Active Substance: BINIMETINIB
     Indication: BRAIN NEOPLASM MALIGNANT
     Route: 048
     Dates: start: 20210107, end: 20210326

REACTIONS (3)
  - Apathy [None]
  - Rash [None]
  - Fatigue [None]

NARRATIVE: CASE EVENT DATE: 20210326
